FAERS Safety Report 22816444 (Version 3)
Quarter: 2024Q3

REPORT INFORMATION
  Report Type: Spontaneous
  Country: US (occurrence: US)
  Receive Date: 20230811
  Receipt Date: 20240919
  Transmission Date: 20241017
  Serious: Yes (Other)
  Sender: AMGEN
  Company Number: US-AMGEN-USASP2023139817

PATIENT
  Age: 72 Year
  Sex: Female
  Weight: 157.48 kg

DRUGS (10)
  1. REPATHA [Suspect]
     Active Substance: EVOLOCUMAB
     Indication: Blood cholesterol increased
     Dosage: 140 MILLIGRAM, Q2WK
     Route: 058
     Dates: start: 20230227
  2. VITAMIN D3 [Concomitant]
     Active Substance: CHOLECALCIFEROL
     Dosage: 50 MICROGRAM, QD
     Route: 048
  3. ESTRADIOL [Concomitant]
     Active Substance: ESTRADIOL
     Dosage: 1 GRAM, Q2WK
     Route: 067
     Dates: start: 20220314
  4. FISH OIL [Concomitant]
     Active Substance: FISH OIL
     Dosage: 1000 MILLIGRAM
     Route: 048
     Dates: start: 20220314
  5. MAGNESIUM [Concomitant]
     Active Substance: MAGNESIUM
     Dosage: 1 TABLET (400 MILLIGRAM/241.3 MG), QD
     Route: 048
     Dates: start: 20220314
  6. PANTOPRAZOLE [Concomitant]
     Active Substance: PANTOPRAZOLE
     Dosage: 40 MILLIGRAM, QD
     Route: 048
     Dates: start: 20220314
  7. ZETIA [Concomitant]
     Active Substance: EZETIMIBE
     Indication: Lipids abnormal
     Dosage: 10 MILLIGRAM
  8. ELAVIL [Concomitant]
     Active Substance: AMITRIPTYLINE HYDROCHLORIDE
     Dosage: 10 MILLIGRAM, 3 HOURS BEFORE SLEEP AS NEEDED
     Dates: start: 20240119
  9. VITAMINS [Concomitant]
     Active Substance: VITAMINS
     Indication: Menopause
     Dosage: UNK UNK, QD
     Route: 048
  10. LEQVIO [Concomitant]
     Active Substance: INCLISIRAN SODIUM
     Dosage: 284 MG/1.5 ML
     Route: 058
     Dates: start: 20240521, end: 20240521

REACTIONS (5)
  - Meniere^s disease [Unknown]
  - Rhinorrhoea [Not Recovered/Not Resolved]
  - Drug intolerance [Unknown]
  - Vestibular migraine [Not Recovered/Not Resolved]
  - Oesophageal spasm [Unknown]
